FAERS Safety Report 18008994 (Version 2)
Quarter: 2020Q3

REPORT INFORMATION
  Report Type: Spontaneous
  Country: US (occurrence: US)
  Receive Date: 20200710
  Receipt Date: 20200805
  Transmission Date: 20201103
  Serious: Yes (Other)
  Sender: FDA-Public Use
  Company Number: US-BAYER-2020-138291

PATIENT
  Age: 22 Year
  Sex: Female
  Weight: 71.2 kg

DRUGS (2)
  1. KYLEENA [Suspect]
     Active Substance: LEVONORGESTREL
     Indication: CONTRACEPTION
     Dosage: 17.5 ?G PER DAY CONTINUOUSLY
     Route: 015
     Dates: start: 20200128, end: 20200205
  2. CYTOTEC [Concomitant]
     Active Substance: MISOPROSTOL
     Dosage: 2 DF

REACTIONS (3)
  - Uterine cervix stenosis [Recovered/Resolved]
  - Uterine perforation [Recovered/Resolved]
  - Device difficult to use [Recovered/Resolved]

NARRATIVE: CASE EVENT DATE: 20200128
